FAERS Safety Report 18937720 (Version 1)
Quarter: 2021Q1

REPORT INFORMATION
  Report Type: Spontaneous
  Country: IT (occurrence: IT)
  Receive Date: 20210224
  Receipt Date: 20210224
  Transmission Date: 20210420
  Serious: Yes (Other)
  Sender: FDA-Public Use
  Company Number: IT-ELI_LILLY_AND_COMPANY-IT202102007806

PATIENT
  Age: 83 Year
  Sex: Male
  Weight: 72 kg

DRUGS (3)
  1. ALIMTA [Suspect]
     Active Substance: PEMETREXED DISODIUM
     Indication: LUNG ADENOCARCINOMA STAGE IV
     Dosage: 700 MG, CYCLICAL
     Route: 042
     Dates: start: 20201111, end: 20210204
  2. DELTACORTENE [Concomitant]
     Active Substance: PREDNISONE
     Indication: PREMEDICATION
     Dosage: 25 MG, UNKNOWN
     Route: 048
  3. DOBETIN [CYANOCOBALAMIN] [Concomitant]
     Active Substance: CYANOCOBALAMIN
     Indication: PREMEDICATION
     Dosage: 500 UG, UNKNOWN
     Route: 030

REACTIONS (3)
  - Gastrointestinal toxicity [Unknown]
  - Blood creatinine increased [Unknown]
  - Thrombocytopenia [Unknown]

NARRATIVE: CASE EVENT DATE: 20210107
